FAERS Safety Report 6088657 (Version 9)
Quarter: 2013Q2

REPORT INFORMATION
  Report Type: Spontaneous
  Country: US (occurrence: US)
  Receive Date: 20060721
  Receipt Date: 20130426
  Transmission Date: 20140414
  Serious: Yes (Other)
  Sender: FDA-Public Use
  Company Number: PHEH2006US08849

PATIENT
  Sex: Female
  Weight: 58.5 kg

DRUGS (19)
  1. ESTRADERM [Suspect]
     Indication: HORMONE REPLACEMENT THERAPY
     Route: 062
     Dates: start: 1994, end: 2004
  2. CLIMARA [Suspect]
  3. PREMARIN [Suspect]
     Indication: MENOPAUSAL SYMPTOMS
  4. CRESTOR [Concomitant]
     Dosage: 5 MG, QD
  5. ZETIA [Concomitant]
  6. CITRACAL [Concomitant]
  7. MULTIVITAMIN ^LAPPE^ [Concomitant]
  8. LORAZEPAM [Concomitant]
     Dosage: 0.5 MG, UNK
  9. ASPIRIN ^BAYER^ [Concomitant]
     Dosage: 81 MG, QD
  10. NEURONTIN [Concomitant]
  11. ULTRAM [Concomitant]
  12. PROPOXYPHENE NAPSYLATE W/ACETAMINOPHENE [Concomitant]
  13. TOBRADEX [Concomitant]
  14. PRINIVIL [Concomitant]
  15. ZITHROMAX Z-PACK [Concomitant]
  16. CIPRO [Concomitant]
  17. TRIMOX [Concomitant]
  18. ERY-TAB [Concomitant]
  19. CEPHALEXIN [Concomitant]
     Dosage: 500 MG, UNK

REACTIONS (51)
  - Postoperative ileus [Recovered/Resolved]
  - Cholelithiasis [Unknown]
  - Mitral valve incompetence [Unknown]
  - Spinal claudication [Unknown]
  - Colitis ischaemic [Recovered/Resolved with Sequelae]
  - Ovarian cancer [Unknown]
  - Adnexa uteri mass [Unknown]
  - Pain [Unknown]
  - Injury [Unknown]
  - Anxiety [Unknown]
  - Deformity [Unknown]
  - Ovarian cancer recurrent [Unknown]
  - Carbohydrate antigen 125 increased [Unknown]
  - Lymphadenopathy [Unknown]
  - Weight decreased [Unknown]
  - Abdominal pain upper [Unknown]
  - Nausea [Unknown]
  - Fatigue [Unknown]
  - Dyspnoea exertional [Unknown]
  - Hypertension [Recovering/Resolving]
  - Diverticulum [Unknown]
  - Abdominal pain [Unknown]
  - Large intestine polyp [Unknown]
  - Constipation [Unknown]
  - Intervertebral disc protrusion [Unknown]
  - Intervertebral disc degeneration [Unknown]
  - Muscle strain [Unknown]
  - Myofascial pain syndrome [Unknown]
  - Gastritis [Unknown]
  - Gastrooesophageal reflux disease [Unknown]
  - Helicobacter gastritis [Unknown]
  - Metaplasia [Unknown]
  - Adrenal mass [Unknown]
  - Pain in extremity [Unknown]
  - Rotator cuff syndrome [Unknown]
  - Dysphagia [Unknown]
  - Arteriosclerosis [Unknown]
  - Neuropathy peripheral [Unknown]
  - Urinary incontinence [Unknown]
  - Metastases to ovary [Unknown]
  - Faecal incontinence [Unknown]
  - Pelvic mass [Unknown]
  - Abdominal mass [Unknown]
  - Renal cyst [Unknown]
  - Hiatus hernia [Unknown]
  - Hydronephrosis [Unknown]
  - Metastases to central nervous system [Unknown]
  - Deep vein thrombosis [Unknown]
  - Hypoaesthesia [Unknown]
  - Paraesthesia [Unknown]
  - Local swelling [Unknown]
